FAERS Safety Report 22370005 (Version 1)
Quarter: 2023Q2

REPORT INFORMATION
  Report Type: Spontaneous
  Country: FR (occurrence: FR)
  Receive Date: 20230526
  Receipt Date: 20230526
  Transmission Date: 20230722
  Serious: Yes (Death, Other)
  Sender: FDA-Public Use
  Company Number: FR-AGUETTANT-2023000610

PATIENT
  Age: 2 Month

DRUGS (1)
  1. LIDOCAINE [Suspect]
     Active Substance: LIDOCAINE
     Indication: Product used for unknown indication
     Dosage: INJECTION
     Route: 065

REACTIONS (2)
  - Loss of consciousness [Fatal]
  - Hypothermia [Fatal]
